FAERS Safety Report 8204131-X (Version None)
Quarter: 2012Q1

REPORT INFORMATION
  Report Type: 
  Country: None (occurrence: None)
  Receive Date: 20120313
  Receipt Date: 20120312
  Transmission Date: 20120608
  Serious: Yes (Hospitalization)
  Sender: FDA-Public Use
  Company Number: BE-BAYER-2011-087047

PATIENT
  Age: 61 Year
  Sex: Female

DRUGS (9)
  1. SORAFENIB (RAF KINASE INHIBITOR) [Suspect]
     Indication: BREAST CANCER METASTATIC
     Dosage: 600 MG
     Route: 048
     Dates: start: 20110831, end: 20110913
  2. D-CURE [Concomitant]
     Indication: OSTEOPOROSIS PROPHYLAXIS
     Dosage: UNK
     Route: 048
     Dates: start: 20070101
  3. ALPRAZOLAM [Concomitant]
     Indication: PROPHYLAXIS
     Dosage: UNK
     Route: 048
     Dates: start: 20101019
  4. CAPECITABINE [Suspect]
     Indication: BREAST CANCER METASTATIC
     Dosage: 400 MG
     Route: 048
     Dates: start: 20110831, end: 20110913
  5. CELECTOL [Concomitant]
     Indication: HYPERTENSION
     Dosage: DAILY DOSE 200 MG
     Route: 048
     Dates: start: 19900101
  6. CALCIUM CARBONATE [Concomitant]
     Indication: OSTEOPOROSIS PROPHYLAXIS
     Dosage: DAILY DOSE 1250 MG
     Route: 048
     Dates: start: 20070101
  7. CAPECITABINE [Suspect]
     Dosage: 300 MG
     Route: 048
     Dates: start: 20111012
  8. SORAFENIB (RAF KINASE INHIBITOR) [Suspect]
     Dosage: 600 MG
     Route: 048
     Dates: start: 20111005
  9. ENOXAPARIN SODIUM [Concomitant]
     Indication: THROMBOSIS PROPHYLAXIS
     Dosage: DAILY DOSE 40 MG
     Route: 058
     Dates: start: 20110815

REACTIONS (10)
  - PYREXIA [None]
  - DIARRHOEA [None]
  - VOMITING [None]
  - COLITIS [None]
  - NAUSEA [None]
  - FATIGUE [None]
  - DECREASED APPETITE [None]
  - RECTAL HAEMORRHAGE [None]
  - DEHYDRATION [None]
  - ASTHENIA [None]
